FAERS Safety Report 11687958 (Version 6)
Quarter: 2016Q4

REPORT INFORMATION
  Report Type: Report from Study
  Country: JP (occurrence: JP)
  Receive Date: 20151030
  Receipt Date: 20161122
  Transmission Date: 20170206
  Serious: Yes (Death, Life-Threatening, Hospitalization)
  Sender: FDA-Public Use
  Company Number: JP-EISAI MEDICAL RESEARCH-EC-2015-011669

PATIENT
  Age: 67 Year
  Sex: Female
  Weight: 56 kg

DRUGS (11)
  1. NEUROTROPIN [Concomitant]
     Active Substance: NEUROTROPIN
  2. HYSRON [Concomitant]
     Active Substance: MEDROXYPROGESTERONE
  3. LYRICA [Concomitant]
     Active Substance: PREGABALIN
  4. FUROSEMIDE. [Concomitant]
     Active Substance: FUROSEMIDE
  5. TSUMURA SHAKUYAKUKANZOTO EXTRACT GRANULES FOR ETHICAL USE [Concomitant]
  6. ZOPICLONE [Concomitant]
     Active Substance: ZOPICLONE
  7. HALAVEN [Suspect]
     Active Substance: ERIBULIN MESYLATE
     Indication: BREAST CANCER RECURRENT
     Route: 041
     Dates: start: 20151021, end: 20151021
  8. ALLOPURINOL. [Concomitant]
     Active Substance: ALLOPURINOL
  9. MIYA-BM [Concomitant]
     Active Substance: CLOSTRIDIUM BUTYRICUM SPORES STRAIN M-55
  10. DECADRON [Concomitant]
     Active Substance: DEXAMETHASONE
  11. HYSRON-H [Concomitant]
     Active Substance: MEDROXYPROGESTERONE

REACTIONS (5)
  - Leukopenia [Recovered/Resolved]
  - Malignant neoplasm progression [Fatal]
  - Acute kidney injury [Recovered/Resolved]
  - Septic shock [Recovered/Resolved]
  - Febrile neutropenia [Fatal]

NARRATIVE: CASE EVENT DATE: 20151027
